FAERS Safety Report 7974480-9 (Version None)
Quarter: 2011Q4

REPORT INFORMATION
  Report Type: 
  Country: None (occurrence: None)
  Receive Date: 20111213
  Receipt Date: 20110705
  Transmission Date: 20120403
  Serious: Yes (Other)
  Sender: FDA-Public Use
  Company Number: US-BAYER-2011-059287

PATIENT
  Age: 59 Year
  Sex: Male
  Weight: 82 kg

DRUGS (8)
  1. TRAMADOL HCL [Concomitant]
     Dosage: UNK
  2. PRISTIQ [Concomitant]
     Dosage: UNK
  3. SINEMET [Concomitant]
     Dosage: UNK
  4. ASPIRIN [Suspect]
     Indication: ISCHAEMIC HEART DISEASE PROPHYLAXIS
     Dosage: 1 DF, QD
     Route: 048
     Dates: start: 20110627, end: 20110630
  5. NAPROXEN SODIUM [Concomitant]
     Dosage: UNK
  6. CLONAZEPAM [Concomitant]
     Dosage: UNK
  7. NEBIVOLOL HCL [Concomitant]
     Dosage: UNK
  8. LYRICA [Concomitant]

REACTIONS (1)
  - VISUAL FIELD DEFECT [None]
